FAERS Safety Report 8784336 (Version 3)
Quarter: 2012Q4

REPORT INFORMATION
  Report Type: Report from Study
  Country: DE (occurrence: DE)
  Receive Date: 20120913
  Receipt Date: 20120926
  Transmission Date: 20130627
  Serious: Yes (Hospitalization)
  Sender: FDA-Public Use
  Company Number: PL-VERTEX PHARMACEUTICAL INC.-000000000000000981

PATIENT
  Age: 74 Year
  Sex: Female
  Weight: 55 kg

DRUGS (7)
  1. VX-950 [Suspect]
     Indication: HEPATITIS C
     Dosage: 2250 mg, qd
     Route: 048
     Dates: start: 20120302, end: 20120516
  2. PEGASYS [Suspect]
     Indication: HEPATITIS C
     Dosage: 180 ?g, qw
     Route: 058
     Dates: start: 20120302, end: 20120712
  3. PEGASYS [Suspect]
     Dosage: 135 ?g, qw
     Route: 058
     Dates: start: 20120712, end: 20120730
  4. COPEGUS [Suspect]
     Indication: HEPATITIS C
     Dosage: 800 mg, qd
     Route: 048
     Dates: start: 20120302, end: 20120525
  5. COPEGUS [Suspect]
     Dosage: 600 mg, qd
     Route: 048
     Dates: start: 20120525, end: 20120730
  6. ASS [Concomitant]
     Dosage: 100 mg, qd
  7. CLARITHROMYCIN [Concomitant]
     Indication: PNEUMONIA
     Dosage: 500 mg, bid
     Route: 048
     Dates: start: 20120614, end: 20120625

REACTIONS (3)
  - Atypical pneumonia [Recovered/Resolved]
  - Pneumothorax [Unknown]
  - Anaemia [Unknown]
